FAERS Safety Report 16485709 (Version 1)
Quarter: 2019Q2

REPORT INFORMATION
  Report Type: Spontaneous
  Country: US (occurrence: US)
  Receive Date: 20190517
  Receipt Date: 20190517
  Transmission Date: 20190711
  Serious: No
  Sender: FDA-Public Use
  Company Number: None

PATIENT

DRUGS (2)
  1. ZYPREXA [Suspect]
     Active Substance: OLANZAPINE
     Indication: MENTAL DISORDER
     Dosage: ?          QUANTITY:15 MG MILLIGRAM(S);?
     Route: 048
     Dates: start: 1996, end: 20190503
  2. ZYPREXA [Suspect]
     Active Substance: OLANZAPINE
     Indication: PARANOIA
     Dosage: ?          QUANTITY:15 MG MILLIGRAM(S);?
     Route: 048
     Dates: start: 1996, end: 20190503

REACTIONS (10)
  - Insomnia [None]
  - Irritability [None]
  - Product counterfeit [None]
  - Anxiety [None]
  - Product odour abnormal [None]
  - Restlessness [None]
  - Anger [None]
  - Depression [None]
  - Withdrawal syndrome [None]
  - Agitation [None]

NARRATIVE: CASE EVENT DATE: 20190329
